FAERS Safety Report 6936284-5 (Version None)
Quarter: 2010Q3

REPORT INFORMATION
  Report Type: 
  Country: None (occurrence: None)
  Receive Date: 20100823
  Receipt Date: 20100817
  Transmission Date: 20110219
  Serious: Yes (Other)
  Sender: FDA-Public Use
  Company Number: BE-JNJCH-A030304

PATIENT
  Age: 48 Year
  Sex: Female

DRUGS (3)
  1. ZYRTEC [Suspect]
     Indication: EYE PRURITUS
     Dosage: TEXT:UNK
     Route: 048
     Dates: start: 20000617, end: 20000701
  2. ATORVASTATIN [Suspect]
     Indication: HYPERLIPIDAEMIA
     Dosage: TEXT:UNK
     Route: 048
     Dates: start: 20000501, end: 20000701
  3. CROMOLYN SODIUM [Suspect]
     Indication: EYE PRURITUS
     Dosage: TEXT:UNK
     Route: 050
     Dates: start: 20000617, end: 20000701

REACTIONS (4)
  - EYE IRRITATION [None]
  - EYE PAIN [None]
  - RETINAL TEAR [None]
  - STEVENS-JOHNSON SYNDROME [None]
